FAERS Safety Report 5223703-8 (Version None)
Quarter: 2007Q1

REPORT INFORMATION
  Report Type: 
  Country: None (occurrence: None)
  Receive Date: 20070130
  Receipt Date: 20070118
  Transmission Date: 20070707
  Serious: Yes (Other)
  Sender: FDA-Public Use
  Company Number: PHNU2007DE00602

PATIENT
  Age: 37 Year
  Sex: Male

DRUGS (2)
  1. LEPONEX [Suspect]
     Dosage: 100 MG, BID
     Route: 048
     Dates: start: 20070118, end: 20070118
  2. CARBAMAZEPINE [Concomitant]
     Indication: ALCOHOL WITHDRAWAL SYNDROME
     Route: 048

REACTIONS (5)
  - ACCIDENTAL OVERDOSE [None]
  - DIZZINESS [None]
  - PALLOR [None]
  - SYNCOPE [None]
  - WRONG DRUG ADMINISTERED [None]
